FAERS Safety Report 7571994-0 (Version None)
Quarter: 2011Q2

REPORT INFORMATION
  Report Type: 
  Country: None (occurrence: None)
  Receive Date: 20110624
  Receipt Date: 20110620
  Transmission Date: 20111010
  Serious: Yes (Hospitalization)
  Sender: FDA-Public Use
  Company Number: NL-ABBOTT-11P-114-0699875-00

PATIENT
  Age: 74 Year
  Sex: Male

DRUGS (12)
  1. DIPYRIDAMOLE [Concomitant]
     Indication: PRODUCT USED FOR UNKNOWN INDICATION
  2. CALCIUM CARBONATE [Concomitant]
     Indication: PRODUCT USED FOR UNKNOWN INDICATION
  3. OMEPRAZOLE [Concomitant]
     Indication: PRODUCT USED FOR UNKNOWN INDICATION
  4. PREDNISONE [Concomitant]
     Indication: PRODUCT USED FOR UNKNOWN INDICATION
  5. RITUXIMAB [Concomitant]
     Indication: PRODUCT USED FOR UNKNOWN INDICATION
  6. TAMSULOSIN HCL [Concomitant]
     Indication: PRODUCT USED FOR UNKNOWN INDICATION
  7. MOVICOLON [Concomitant]
     Indication: PRODUCT USED FOR UNKNOWN INDICATION
  8. ACETAMINOPHEN [Concomitant]
     Indication: PRODUCT USED FOR UNKNOWN INDICATION
  9. FUROSEMIDE [Concomitant]
     Indication: PRODUCT USED FOR UNKNOWN INDICATION
  10. TEMAZEPAM [Concomitant]
     Indication: PRODUCT USED FOR UNKNOWN INDICATION
  11. ASCAL CARDIO [Concomitant]
     Indication: PRODUCT USED FOR UNKNOWN INDICATION
  12. VALPROIC ACID [Suspect]
     Indication: GRAND MAL CONVULSION
     Dosage: 1000 MILLIGRAM (S); TWICE A DAY
     Route: 048
     Dates: start: 20090825, end: 20101224

REACTIONS (4)
  - MUSCULAR WEAKNESS [None]
  - HYPOTHERMIA [None]
  - BRADYPHRENIA [None]
  - HYPOVENTILATION [None]
